FAERS Safety Report 8458301-6 (Version None)
Quarter: 2012Q2

REPORT INFORMATION
  Report Type: 
  Country: None (occurrence: None)
  Receive Date: 20120622
  Receipt Date: 20120615
  Transmission Date: 20120825
  Serious: No
  Sender: FDA-Public Use
  Company Number: US-BAYER-2012-059992

PATIENT
  Sex: Female

DRUGS (2)
  1. BEYAZ [Suspect]
  2. YAZ [Suspect]
     Dosage: UNK

REACTIONS (2)
  - DEPRESSION [None]
  - WEIGHT INCREASED [None]
